FAERS Safety Report 11363197 (Version 2)
Quarter: 2015Q3

REPORT INFORMATION
  Report Type: Spontaneous
  Country: US (occurrence: US)
  Receive Date: 20150811
  Receipt Date: 20150826
  Transmission Date: 20151125
  Serious: Yes (Hospitalization, Other)
  Sender: FDA-Public Use
  Company Number: US-AMGEN-USASP2015079473

PATIENT
  Age: 75 Year
  Sex: Male

DRUGS (1)
  1. XGEVA [Suspect]
     Active Substance: DENOSUMAB
     Indication: PROSTATE CANCER METASTATIC
     Dosage: UNK, UNK
     Route: 065

REACTIONS (6)
  - Tooth abscess [Unknown]
  - Trismus [Unknown]
  - Infection [Recovering/Resolving]
  - Muscle disorder [Unknown]
  - Local swelling [Recovering/Resolving]
  - Toothache [Unknown]
